FAERS Safety Report 6505609-7 (Version None)
Quarter: 2009Q4

REPORT INFORMATION
  Report Type: 
  Country: None (occurrence: None)
  Receive Date: 20091217
  Receipt Date: 20091217
  Transmission Date: 20100525
  Serious: Yes (Hospitalization)
  Sender: FDA-Public Use
  Company Number: None

PATIENT
  Age: 41 Year
  Sex: Female
  Weight: 57.6068 kg

DRUGS (2)
  1. VYVANSE [Suspect]
     Indication: ATTENTION DEFICIT/HYPERACTIVITY DISORDER
     Dosage: 1 Q AM PO
     Route: 048
     Dates: start: 20081013, end: 20091201
  2. LEXAPRO [Concomitant]

REACTIONS (7)
  - ABNORMAL BEHAVIOUR [None]
  - COMPLEX PARTIAL SEIZURES [None]
  - EMOTIONAL DISORDER [None]
  - MANIA [None]
  - PERSONALITY CHANGE [None]
  - PSYCHOTIC DISORDER [None]
  - SOCIAL PROBLEM [None]
